FAERS Safety Report 22594104 (Version 1)
Quarter: 2023Q2

REPORT INFORMATION
  Report Type: Spontaneous
  Country: US (occurrence: US)
  Receive Date: 20230613
  Receipt Date: 20230613
  Transmission Date: 20230722
  Serious: No
  Sender: FDA-Public Use
  Company Number: US-Bion-011706

PATIENT
  Age: 51 Year
  Sex: Female

DRUGS (1)
  1. CETIRIZINE [Suspect]
     Active Substance: CETIRIZINE HYDROCHLORIDE
     Indication: Eye pruritus
     Dosage: ONE LIQUID GELS
     Dates: start: 20230602

REACTIONS (1)
  - Drug ineffective [Not Recovered/Not Resolved]
